FAERS Safety Report 4729534-7 (Version None)
Quarter: 2005Q3

REPORT INFORMATION
  Report Type: 
  Country: None (occurrence: None)
  Receive Date: 20050801
  Receipt Date: 20050610
  Transmission Date: 20060218
  Serious: Yes (Death, Hospitalization)
  Sender: FDA-Public Use
  Company Number: FR-SP-2005-01109

PATIENT
  Age: 73 Year
  Sex: Male

DRUGS (11)
  1. IMMUCYST [Suspect]
     Indication: BLADDER CANCER
     Route: 043
     Dates: start: 20050307, end: 20050418
  2. CORBIONAX [Concomitant]
     Dosage: 200 MG/WEEK
     Route: 048
  3. AMLODIPINE BESYLATE [Concomitant]
     Dosage: 5MG/DAY
     Route: 048
  4. OGAST [Concomitant]
     Dosage: 15 MG/DAY
     Route: 048
  5. PRAVASTATIN [Concomitant]
     Dosage: 20MG/DAY
     Route: 048
  6. PLAVIX [Concomitant]
     Dosage: 75 MG/ DAY
     Route: 048
  7. CORVASAL [Concomitant]
  8. COMBIVENT [Concomitant]
  9. SERETIDE DISKUS [Concomitant]
  10. ZOLPIDEM G GAM [Concomitant]
  11. ALPRAZOLAM [Concomitant]

REACTIONS (9)
  - DRUG INEFFECTIVE [None]
  - GAMMA-GLUTAMYLTRANSFERASE INCREASED [None]
  - HYPOALBUMINAEMIA [None]
  - HYPOXIA [None]
  - INTERSTITIAL LUNG DISEASE [None]
  - LEUKOCYTOSIS [None]
  - LUNG DISORDER [None]
  - NEUTROPHIL COUNT INCREASED [None]
  - PYREXIA [None]
